FAERS Safety Report 8475256-9 (Version None)
Quarter: 2012Q2

REPORT INFORMATION
  Report Type: 
  Country: None (occurrence: None)
  Receive Date: 20120628
  Receipt Date: 20120621
  Transmission Date: 20120825
  Serious: Yes (Hospitalization)
  Sender: FDA-Public Use
  Company Number: FR-GILEAD-2012-0056976

PATIENT
  Sex: Male

DRUGS (9)
  1. PREZISTA [Concomitant]
     Dosage: 800 MG, QD
  2. MOPRAL                             /00661201/ [Concomitant]
  3. VIREAD [Suspect]
     Indication: HIV INFECTION
     Dosage: UNK
     Route: 048
     Dates: end: 20110527
  4. NORVIR [Concomitant]
     Dosage: 100 MG, UNK
     Route: 048
  5. SERTRALINE HYDROCHLORIDE [Concomitant]
  6. CRESTOR [Concomitant]
  7. CLOMIPRAMINE HCL [Concomitant]
  8. ASPIRIN [Concomitant]
  9. VIDEX [Interacting]
     Indication: HIV INFECTION
     Dosage: UNK
     Route: 048
     Dates: end: 20110527

REACTIONS (1)
  - MITOCHONDRIAL CYTOPATHY [None]
